FAERS Safety Report 9509627 (Version 4)
Quarter: 2015Q1

REPORT INFORMATION
  Report Type: Report from Study
  Country: JP (occurrence: JP)
  Receive Date: 20130909
  Receipt Date: 20150108
  Transmission Date: 20150721
  Serious: Yes (Life-Threatening, Hospitalization, Other)
  Sender: FDA-Public Use
  Company Number: JP-TEVA-430661USA

PATIENT
  Age: 16 Year
  Sex: Female
  Weight: 56 kg

DRUGS (13)
  1. ZINC [Suspect]
     Active Substance: ZINC\ZINC CHLORIDE
     Dosage: 150 MILLIGRAM DAILY;
     Route: 048
     Dates: start: 20090401, end: 20130803
  2. PYDOXAL [Concomitant]
     Active Substance: PYRIDOXAL
     Indication: PROPHYLAXIS
     Dosage: 30 MILLIGRAM DAILY;
     Route: 048
     Dates: start: 20140704, end: 20140815
  3. REBAMIPIDE [Concomitant]
     Active Substance: REBAMIPIDE
     Dosage: 300 MILLIGRAM DAILY;
     Route: 048
     Dates: start: 20140708, end: 20140803
  4. METALCAPTASE [Concomitant]
     Active Substance: PENICILLAMINE
     Dosage: 600 MILLIGRAM DAILY;
     Route: 048
     Dates: start: 20140624, end: 20140815
  5. TAKEPRON [Concomitant]
     Active Substance: LANSOPRAZOLE
     Route: 048
     Dates: start: 20140703, end: 20140708
  6. ZINC [Suspect]
     Active Substance: ZINC\ZINC CHLORIDE
     Indication: HEPATO-LENTICULAR DEGENERATION
     Dosage: 100 MILLIGRAM DAILY;
     Route: 048
     Dates: start: 20080804, end: 20090331
  7. METALCAPTASE [Concomitant]
     Active Substance: PENICILLAMINE
     Indication: HEPATO-LENTICULAR DEGENERATION
     Dosage: 600 MILLIGRAM DAILY;
     Route: 048
     Dates: start: 20080804, end: 20090401
  8. KAYTWO [Concomitant]
     Active Substance: MENATETRENONE
     Dosage: 15 MILLIGRAM DAILY;
     Route: 048
     Dates: start: 20140613, end: 20140702
  9. SELBEX [Concomitant]
     Active Substance: TEPRENONE
     Dosage: 150 MILLIGRAM DAILY;
     Route: 048
     Dates: start: 20140624, end: 20140702
  10. TRANSAMIN [Concomitant]
     Active Substance: TRANEXAMIC ACID
     Dosage: 750 MILLIGRAM DAILY;
     Route: 048
     Dates: start: 20091110, end: 20091113
  11. TOMIRON [Concomitant]
     Active Substance: CEFTERAM PIVOXIL
     Dosage: 300 MILLIGRAM DAILY;
     Route: 048
     Dates: start: 20091110, end: 20091113
  12. PYDOXAL [Concomitant]
     Active Substance: PYRIDOXAL
     Dosage: 20 MILLIGRAM DAILY;
     Dates: start: 20080804, end: 20090401
  13. TOMIRON [Concomitant]
     Active Substance: CEFTERAM PIVOXIL
     Dosage: 300 MILLIGRAM DAILY;
     Route: 048
     Dates: start: 20091015, end: 20091017

REACTIONS (3)
  - Appendicitis [Recovered/Resolved]
  - Abortion missed [Recovered/Resolved]
  - Hepatic cirrhosis [Recovering/Resolving]

NARRATIVE: CASE EVENT DATE: 20121223
